FAERS Safety Report 6380102-3 (Version None)
Quarter: 2009Q3

REPORT INFORMATION
  Report Type: 
  Country: None (occurrence: None)
  Receive Date: 20090929
  Receipt Date: 20090918
  Transmission Date: 20100115
  Serious: Yes (Hospitalization)
  Sender: FDA-Public Use
  Company Number: DE-BIOGENIDEC-2009BI030097

PATIENT
  Age: 46 Year
  Sex: Male
  Weight: 76 kg

DRUGS (5)
  1. AVONEX [Suspect]
     Indication: RELAPSING-REMITTING MULTIPLE SCLEROSIS
     Route: 030
     Dates: start: 20090301
  2. ASPIRIN [Concomitant]
     Indication: HYPERTENSION
  3. RAMIPRIL [Concomitant]
     Indication: HYPERTENSION
  4. IBUPROFEN [Concomitant]
     Indication: PROPHYLAXIS
     Route: 048
     Dates: start: 20090101
  5. GABAPENTIN [Concomitant]
     Indication: PAIN
     Route: 048
     Dates: start: 20090101

REACTIONS (2)
  - BURNING SENSATION [None]
  - HYPOAESTHESIA [None]
